FAERS Safety Report 13294078 (Version 5)
Quarter: 2020Q3

REPORT INFORMATION
  Report Type: Report from Study
  Country: AU (occurrence: AU)
  Receive Date: 20170303
  Receipt Date: 20180228
  Transmission Date: 20201104
  Serious: Yes (Death, Hospitalization, Other)
  Sender: FDA-Public Use
  Company Number: AU-BAXALTA-2017BLT001439

PATIENT
  Age: 41 Year
  Sex: Male

DRUGS (57)
  1. METARAMINOL TARTRATE [Concomitant]
     Active Substance: METARAMINOL BITARTRATE
     Indication: SEDATION
  2. FACTOR VIII INHIBITOR BYPASSING FRACTION; BAXJECT II NF [Suspect]
     Active Substance: ANTI-INHIBITOR COAGULANT COMPLEX
     Indication: RECTAL HAEMORRHAGE
     Dosage: 6000 IU, 65 UNITS/KG UNK
     Route: 065
     Dates: start: 20170202
  3. NOVOSEVEN [Suspect]
     Active Substance: COAGULATION FACTOR VIIA RECOMBINANT HUMAN
     Indication: HAEMOPHILIA A WITH ANTI FACTOR VIII
     Dosage: 8000 ?G, 87 MCG/KG, UNK
     Route: 065
     Dates: start: 20170131
  4. NOVOSEVEN [Suspect]
     Active Substance: COAGULATION FACTOR VIIA RECOMBINANT HUMAN
     Dosage: 8000 ?G, 87 MCG/KG, UNK
     Route: 065
     Dates: start: 20170201
  5. EMICIZUMAB. [Suspect]
     Active Substance: EMICIZUMAB
     Dosage: 3MG/KG/WK FOR 4 WKS WHEN INTIATING TX, FOLLOWED BY 1.5 MG/KG/WK FOR MINIMUM 4 WKS TOTAL, 1X A WEEK
     Route: 058
     Dates: start: 20160608
  6. ENDEP [Concomitant]
     Active Substance: AMITRIPTYLINE HYDROCHLORIDE
     Indication: PAIN
  7. FENTANYL. [Concomitant]
     Active Substance: FENTANYL
     Indication: SEDATION
  8. OXYCODONE [Concomitant]
     Active Substance: OXYCODONE
     Indication: PAIN
  9. DIAZEPAM. [Concomitant]
     Active Substance: DIAZEPAM
     Indication: AGITATION
  10. OLANZAPINE. [Concomitant]
     Active Substance: OLANZAPINE
     Indication: RESTLESSNESS
  11. HALOPERIDOL. [Concomitant]
     Active Substance: HALOPERIDOL
     Indication: RESTLESSNESS
  12. CALCIUM GLUCONATE. [Concomitant]
     Active Substance: CALCIUM GLUCONATE
     Indication: ELECTROLYTE IMBALANCE
  13. KETAMINE [Concomitant]
     Active Substance: KETAMINE
     Indication: PAIN
  14. PROPOFOL. [Concomitant]
     Active Substance: PROPOFOL
     Indication: SEDATION
  15. FACTOR VIII INHIBITOR BYPASSING FRACTION; BAXJECT II NF [Suspect]
     Active Substance: ANTI-INHIBITOR COAGULANT COMPLEX
     Dosage: 6000 IU, 65 UNITS/KG, 3X A DAY
     Route: 065
     Dates: start: 20170203, end: 20170206
  16. NOVOSEVEN [Suspect]
     Active Substance: COAGULATION FACTOR VIIA RECOMBINANT HUMAN
     Dosage: 8000 ?G, 87 MCG/KG, UNK
     Route: 065
     Dates: start: 20170202
  17. PERINDOPRIL ARGININE [Concomitant]
     Active Substance: PERINDOPRIL ARGININE
     Indication: HYPERTENSION
  18. AMLODIPINE [Concomitant]
     Active Substance: AMLODIPINE BESYLATE
     Indication: HYPERTENSION
  19. AMLODIPINE [Concomitant]
     Active Substance: AMLODIPINE BESYLATE
     Indication: CHEST PAIN
  20. GLYCERYL TRINITRATE [Concomitant]
     Active Substance: NITROGLYCERIN
     Indication: CHEST PAIN
  21. FOLIC ACID. [Concomitant]
     Active Substance: FOLIC ACID
     Indication: ANAEMIA
  22. MIDAZOLAM HYDROCHLORIDE. [Concomitant]
     Active Substance: MIDAZOLAM HYDROCHLORIDE
     Indication: AGITATION
  23. FACTOR VIII INHIBITOR BYPASSING FRACTION; BAXJECT II NF [Suspect]
     Active Substance: ANTI-INHIBITOR COAGULANT COMPLEX
     Dosage: 6000 IU, 65 UNITS/KG, UNK
     Route: 065
     Dates: start: 20170202
  24. NOVOSEVEN [Suspect]
     Active Substance: COAGULATION FACTOR VIIA RECOMBINANT HUMAN
     Dosage: 8000 ?G, 87 MCG/KG, UNK
     Route: 065
     Dates: start: 20170201
  25. NOVOSEVEN [Suspect]
     Active Substance: COAGULATION FACTOR VIIA RECOMBINANT HUMAN
     Dosage: 8000 ?G, 87 MCG/KG, UNK
     Route: 065
     Dates: start: 20170202
  26. EMICIZUMAB. [Suspect]
     Active Substance: EMICIZUMAB
     Dosage: 0.92 ML, 1X A WEEK
     Route: 058
     Dates: start: 20170118
  27. AMITRIPTYLINE [Concomitant]
     Active Substance: AMITRIPTYLINE
     Indication: PAIN
  28. CLONIDINE. [Concomitant]
     Active Substance: CLONIDINE
     Indication: CHEST PAIN
  29. PRAZOSIN. [Concomitant]
     Active Substance: PRAZOSIN
     Indication: HYPERTENSION
  30. MAGNESIUM SULPHATE                 /07507001/ [Concomitant]
     Active Substance: MAGNESIUM SULFATE
     Indication: ELECTROLYTE IMBALANCE
  31. DEXMEDETOMIDINE. [Concomitant]
     Active Substance: DEXMEDETOMIDINE
     Indication: PAIN
  32. NORADRENALINE                      /00127501/ [Concomitant]
     Active Substance: NOREPINEPHRINE
     Indication: HYPERTENSION
  33. VASOPRESSIN. [Concomitant]
     Active Substance: VASOPRESSIN
     Indication: HYPERTENSION
  34. NOVOSEVEN [Suspect]
     Active Substance: COAGULATION FACTOR VIIA RECOMBINANT HUMAN
     Indication: RECTAL HAEMORRHAGE
     Dosage: 8000 ?G, 87 MCG/KG, UNK
     Route: 065
     Dates: start: 20170131
  35. NOVOSEVEN [Suspect]
     Active Substance: COAGULATION FACTOR VIIA RECOMBINANT HUMAN
     Dosage: 8000 ?G, 87 MCG/KG, UNK
     Route: 065
     Dates: start: 20170201
  36. NOVOSEVEN [Suspect]
     Active Substance: COAGULATION FACTOR VIIA RECOMBINANT HUMAN
     Dosage: 8000 ?G, 87 MCG/KG, UNK
     Route: 065
     Dates: start: 20170202
  37. EMICIZUMAB. [Suspect]
     Active Substance: EMICIZUMAB
     Indication: FACTOR VIII DEFICIENCY
     Dosage: LAST DOSE ADMINISTERED, 0.92 ML, 1X A WEEK
     Route: 058
     Dates: start: 20170131
  38. METHADONE [Concomitant]
     Active Substance: METHADONE HYDROCHLORIDE
     Indication: PAIN
  39. PANADOL [Concomitant]
     Active Substance: ACETAMINOPHEN
     Indication: PAIN
  40. THIAMINE. [Concomitant]
     Active Substance: THIAMINE
     Indication: ELECTROLYTE IMBALANCE
  41. METOPROLOL. [Concomitant]
     Active Substance: METOPROLOL
     Indication: HYPERTENSION
  42. ROCURONIUM [Concomitant]
     Active Substance: ROCURONIUM BROMIDE
     Indication: SEDATION
  43. FENTANYL. [Concomitant]
     Active Substance: FENTANYL
     Indication: PAIN
  44. PARACETAMOL [Concomitant]
     Active Substance: ACETAMINOPHEN
     Indication: PAIN
  45. HYDRALAZINE [Concomitant]
     Active Substance: HYDRALAZINE HYDROCHLORIDE
     Indication: HYPERTENSION
  46. ACETYLCYSTEINE. [Concomitant]
     Active Substance: ACETYLCYSTEINE
     Indication: RENAL FAILURE
  47. NOVOSEVEN [Suspect]
     Active Substance: COAGULATION FACTOR VIIA RECOMBINANT HUMAN
     Indication: HAEMORRHAGE
     Dosage: 8000 ?G, 87 MCG/KG, UNK
     Route: 065
     Dates: start: 20170131
  48. NOVOSEVEN [Suspect]
     Active Substance: COAGULATION FACTOR VIIA RECOMBINANT HUMAN
     Dosage: 8000 ?G, 87 MCG/KG, UNK
     Route: 065
     Dates: start: 20170202
  49. CELEBREX [Concomitant]
     Active Substance: CELECOXIB
     Indication: HAEMOPHILIC ARTHROPATHY
  50. POTASSIUM CHLORIDE. [Concomitant]
     Active Substance: POTASSIUM CHLORIDE
     Indication: ELECTROLYTE IMBALANCE
  51. CAPTOPRIL. [Concomitant]
     Active Substance: CAPTOPRIL
     Indication: CHEST PAIN
  52. QUETIAPINE. [Concomitant]
     Active Substance: QUETIAPINE
     Indication: RESTLESSNESS
  53. MORPHINE [Concomitant]
     Active Substance: MORPHINE
     Indication: MECHANICAL VENTILATION
  54. NOVOSEVEN [Suspect]
     Active Substance: COAGULATION FACTOR VIIA RECOMBINANT HUMAN
     Dosage: 8000 ?G, 87 MCG/KG, UNK
     Route: 065
     Dates: start: 20170202
  55. FRUSEMIDE                          /00032601/ [Concomitant]
     Active Substance: FUROSEMIDE
     Indication: RENAL FAILURE
  56. IRON POLYMALTOSE [Concomitant]
     Active Substance: IRON POLYMALTOSE
     Indication: ANAEMIA
  57. SODIUM BICARBONATE. [Concomitant]
     Active Substance: SODIUM BICARBONATE
     Indication: ELECTROLYTE IMBALANCE

REACTIONS (2)
  - Rectal haemorrhage [Fatal]
  - Thrombotic microangiopathy [Recovering/Resolving]

NARRATIVE: CASE EVENT DATE: 20170131
